FAERS Safety Report 9213804 (Version 1)
Quarter: 2013Q2

REPORT INFORMATION
  Report Type: Spontaneous
  Country: IT (occurrence: IT)
  Receive Date: 20130405
  Receipt Date: 20130405
  Transmission Date: 20140414
  Serious: Yes (Other)
  Sender: FDA-Public Use
  Company Number: IT-PFIZER INC-2013101434

PATIENT
  Age: 71 Year
  Sex: Female

DRUGS (4)
  1. CISPLATINO [Suspect]
     Indication: TONSIL CANCER
     Dosage: 175 MG, (1 CYCLICAL)
     Route: 042
     Dates: start: 20130126, end: 20130131
  2. FLUOROURACIL ^TEVA^ [Suspect]
     Indication: TONSIL CANCER
     Dosage: 9000 MG, (1 TOTAL)
     Route: 041
     Dates: start: 20130126, end: 20130131
  3. DECADRON [Concomitant]
     Dosage: UNK
  4. KYTRIL [Concomitant]
     Dosage: UNK

REACTIONS (6)
  - Syncope [Recovering/Resolving]
  - Thrombocytopenia [Recovering/Resolving]
  - Neutropenia [Recovering/Resolving]
  - Stomatitis [Recovering/Resolving]
  - Diarrhoea [Recovering/Resolving]
  - Nausea [Recovering/Resolving]
